FAERS Safety Report 23045578 (Version 1)
Quarter: 2023Q4

REPORT INFORMATION
  Report Type: Report from Study
  Country: CA (occurrence: CA)
  Receive Date: 20231009
  Receipt Date: 20231009
  Transmission Date: 20240109
  Serious: Yes (Other)
  Sender: FDA-Public Use
  Company Number: CA-002147023-NVSC2022CA074331

PATIENT
  Age: 32 Year
  Sex: Female

DRUGS (3)
  1. HYRIMOZ [Suspect]
     Active Substance: ADALIMUMAB-ADAZ
     Indication: Crohn^s disease
     Dosage: 40 MG, BIW (BIWEEKLY, EVERY 21 DAYS)
     Route: 058
     Dates: start: 20210827
  2. HYRIMOZ [Suspect]
     Active Substance: ADALIMUMAB-ADAZ
     Dosage: 40 MG
     Route: 058
     Dates: start: 20220414
  3. HYRIMOZ [Suspect]
     Active Substance: ADALIMUMAB-ADAZ
     Dosage: 40 MG 1 EVERY 2 WEEKS
     Route: 058
     Dates: start: 20220414

REACTIONS (9)
  - Pneumonia [Not Recovered/Not Resolved]
  - Arthralgia [Not Recovered/Not Resolved]
  - Anal fissure [Not Recovered/Not Resolved]
  - Drug level increased [Not Recovered/Not Resolved]
  - Diarrhoea [Not Recovered/Not Resolved]
  - COVID-19 [Not Recovered/Not Resolved]
  - Nasopharyngitis [Not Recovered/Not Resolved]
  - Product dose omission issue [Not Recovered/Not Resolved]
  - Product supply issue [Not Recovered/Not Resolved]

NARRATIVE: CASE EVENT DATE: 20220201
